FAERS Safety Report 8953592 (Version 2)
Quarter: 2012Q4

REPORT INFORMATION
  Report Type: 
  Country: US (occurrence: US)
  Receive Date: 20121206
  Receipt Date: 20121213
  Transmission Date: 20130627
  Serious: Yes (Hospitalization, Other)
  Sender: FDA-Public Use
  Company Number: US-ASTRAZENECA-2012SE90938

PATIENT
  Age: 56 Year
  Sex: Male
  Weight: 142.9 kg

DRUGS (6)
  1. TOPROL-XL [Suspect]
     Indication: ATRIAL FIBRILLATION
     Route: 048
     Dates: end: 201211
  2. TOPROL-XL [Suspect]
     Indication: ATRIAL FIBRILLATION
     Dosage: GENERIC
     Route: 048
     Dates: start: 201211
  3. LEVOXYL [Concomitant]
     Indication: HYPOTHYROIDISM
     Route: 058
  4. CORDORONE [Concomitant]
     Indication: ATRIAL FIBRILLATION
  5. FLECAINIDE ACETATE [Concomitant]
     Indication: HEART RATE ABNORMAL
  6. FENTANYL [Concomitant]
     Indication: TESTICULAR PAIN
     Dosage: 50 MG REPLACED EVERY THREE DAYS

REACTIONS (9)
  - Chest pain [Unknown]
  - Atrial fibrillation [Recovered/Resolved]
  - Arthralgia [Unknown]
  - Arthralgia [Unknown]
  - Testicular pain [Unknown]
  - Malaise [Unknown]
  - Sleep apnoea syndrome [Unknown]
  - Stress [Unknown]
  - Drug ineffective [Unknown]
